FAERS Safety Report 16709768 (Version 3)
Quarter: 2019Q3

REPORT INFORMATION
  Report Type: Spontaneous
  Country: AU (occurrence: AU)
  Receive Date: 20190816
  Receipt Date: 20190926
  Transmission Date: 20191004
  Serious: No
  Sender: FDA-Public Use
  Company Number: AU-GALDERMA-AU19049617

PATIENT
  Age: 41 Year
  Sex: Male

DRUGS (1)
  1. EPIDUO [Suspect]
     Active Substance: ADAPALENE\BENZOYL PEROXIDE
     Indication: ACNE
     Dosage: 0.1%/2.5%
     Route: 061
     Dates: start: 201901

REACTIONS (6)
  - Dysphoria [Unknown]
  - Skin discolouration [Recovered/Resolved]
  - Skin hyperpigmentation [Unknown]
  - Scar [Unknown]
  - Depression [Unknown]
  - Social anxiety disorder [Unknown]

NARRATIVE: CASE EVENT DATE: 201901
